FAERS Safety Report 20660886 (Version 4)
Quarter: 2022Q3

REPORT INFORMATION
  Report Type: Spontaneous
  Country: US (occurrence: US)
  Receive Date: 20220331
  Receipt Date: 20220902
  Transmission Date: 20221027
  Serious: Yes (Other)
  Sender: FDA-Public Use
  Company Number: US-BRISTOL-MYERS SQUIBB COMPANY-2022-013100

PATIENT
  Age: 85 Year
  Sex: Female

DRUGS (4)
  1. POMALYST [Suspect]
     Active Substance: POMALIDOMIDE
     Indication: Anaemia vitamin B12 deficiency
     Dosage: 1-21 EVERY 28 DAYS
     Route: 048
  2. POMALYST [Suspect]
     Active Substance: POMALIDOMIDE
     Route: 048
  3. POMALYST [Suspect]
     Active Substance: POMALIDOMIDE
     Dosage: 1 CAPSULE FOR  21 DAYS THEN OFF FOR 7 DAYS TO COMPLETE 28 DAYS,?BATCH NUMBER (C2506A)
     Route: 048
     Dates: start: 20170925
  4. POMALYST [Suspect]
     Active Substance: POMALIDOMIDE
     Dosage: TAKE 1 CAPSULE BY MOUTH DAILY FOR 21 DAYS WITH 7 DAYS OFF EVERY 28 DAYS
     Route: 048

REACTIONS (10)
  - Haematochezia [Unknown]
  - Ankle fracture [Unknown]
  - Fall [Recovered/Resolved]
  - Pain in extremity [Recovered/Resolved]
  - Intentional product use issue [Recovered/Resolved]
  - Weight increased [Unknown]
  - Depression [Unknown]
  - Gait disturbance [Unknown]
  - Product dose omission in error [Recovered/Resolved]
  - Memory impairment [Unknown]
